FAERS Safety Report 15586887 (Version 1)
Quarter: 2018Q4

REPORT INFORMATION
  Report Type: Spontaneous
  Country: US (occurrence: US)
  Receive Date: 20181102
  Receipt Date: 20181102
  Transmission Date: 20190205
  Serious: Yes (Hospitalization, Disabling)
  Sender: FDA-Public Use
  Company Number: None

PATIENT

DRUGS (1)
  1. GADOLINIUM-CONTAINING CONTRAST [Suspect]
     Active Substance: GADOLINIUM
     Indication: NUCLEAR MAGNETIC RESONANCE IMAGING
     Dates: start: 20180510, end: 20180510

REACTIONS (4)
  - Balance disorder [None]
  - Fatigue [None]
  - Speech disorder [None]
  - Memory impairment [None]

NARRATIVE: CASE EVENT DATE: 201805
